FAERS Safety Report 18180081 (Version 3)
Quarter: 2021Q3

REPORT INFORMATION
  Report Type: Spontaneous
  Country: US (occurrence: US)
  Receive Date: 20200821
  Receipt Date: 20210819
  Transmission Date: 20211014
  Serious: Yes (Death, Other)
  Sender: FDA-Public Use
  Company Number: US-PFIZER INC-2020323506

PATIENT
  Age: 5 Decade
  Sex: Male

DRUGS (3)
  1. VINCRISTINE SULFATE. [Suspect]
     Active Substance: VINCRISTINE SULFATE
     Indication: LEUKAEMIA
     Dosage: UNK
  2. INOTUZUMAB OZOGAMICIN [Suspect]
     Active Substance: INOTUZUMAB OZOGAMICIN
     Indication: LEUKAEMIA
     Dosage: UNK
  3. ASPARAGINASE [Suspect]
     Active Substance: ASPARAGINASE
     Indication: LEUKAEMIA
     Dosage: UNK

REACTIONS (2)
  - Neoplasm progression [Fatal]
  - Venoocclusive liver disease [Fatal]
